FAERS Safety Report 18032021 (Version 1)
Quarter: 2020Q3

REPORT INFORMATION
  Report Type: Spontaneous
  Country: AR (occurrence: AR)
  Receive Date: 20200716
  Receipt Date: 20200716
  Transmission Date: 20201103
  Serious: Yes (Other)
  Sender: FDA-Public Use
  Company Number: AR-PFIZER INC-2020271423

PATIENT
  Age: 71 Year
  Sex: Male

DRUGS (2)
  1. INLYTA [Suspect]
     Active Substance: AXITINIB
     Indication: RENAL CANCER
     Dosage: 10 MG, DAILY
     Dates: start: 20161216
  2. ILNIDER [Suspect]
     Active Substance: AXITINIB
     Dosage: UNK
     Dates: start: 2020

REACTIONS (3)
  - Blindness [Unknown]
  - Gastritis erosive [Unknown]
  - Colitis [Unknown]

NARRATIVE: CASE EVENT DATE: 202005
